FAERS Safety Report 5918431-7 (Version None)
Quarter: 2008Q4

REPORT INFORMATION
  Report Type: 
  Country: None (occurrence: None)
  Receive Date: 20081015
  Receipt Date: 20081010
  Transmission Date: 20090506
  Serious: Yes (Hospitalization)
  Sender: FDA-Public Use
  Company Number: US-RANBAXY-2008RR-18584

PATIENT
  Age: 46 Year
  Sex: Female

DRUGS (16)
  1. GABAPENTIN [Suspect]
     Dosage: 300 MG, TID
  2. LISINOPRIL [Concomitant]
     Indication: HYPERTENSION
  3. HYDROCHLOROTHIAZIDE [Concomitant]
     Indication: HYPERTENSION
  4. FUROSEMIDE [Concomitant]
     Indication: HYPERTENSION
  5. ATORVASTATIN CALCIUM [Concomitant]
     Indication: HYPERLIPIDAEMIA
  6. OMEPRAZOLE [Concomitant]
     Indication: GASTROOESOPHAGEAL REFLUX DISEASE
  7. SALMETEROL/FLUTICASONE PROPIONATE [Concomitant]
     Indication: ASTHMA
  8. SALBUTAMOL [Concomitant]
     Indication: ASTHMA
  9. METFORMIN [Concomitant]
     Indication: TYPE 2 DIABETES MELLITUS
  10. INSULIN LISPRO [Concomitant]
     Indication: TYPE 2 DIABETES MELLITUS
  11. OXYCODONE HCL [Concomitant]
     Indication: OSTEOARTHRITIS
  12. OXYCODONE HCL [Concomitant]
     Indication: BACK PAIN
  13. VENLAFAXINE HCL [Concomitant]
     Indication: DEPRESSION
  14. ALPRAZOLAM [Concomitant]
     Indication: ANXIETY DISORDER
  15. MOXIFLOXACIN HCL [Concomitant]
     Indication: PNEUMONIA
  16. MOXIFLOXACIN HCL [Concomitant]
     Indication: URINARY TRACT INFECTION

REACTIONS (10)
  - CONFUSIONAL STATE [None]
  - DEAFNESS [None]
  - DRUG LEVEL INCREASED [None]
  - HAEMODIALYSIS [None]
  - HALLUCINATION [None]
  - MYOCLONUS [None]
  - PLATELET COUNT INCREASED [None]
  - PNEUMONIA [None]
  - URINARY TRACT INFECTION [None]
  - WHITE BLOOD CELL COUNT INCREASED [None]
